FAERS Safety Report 7320540-5 (Version None)
Quarter: 2011Q1

REPORT INFORMATION
  Report Type: 
  Country: None (occurrence: None)
  Receive Date: 20110215
  Receipt Date: 20110124
  Transmission Date: 20110831
  Serious: Yes (Hospitalization, Other)
  Sender: FDA-Public Use
  Company Number: JP-021966

PATIENT
  Age: 53 Year
  Sex: Male

DRUGS (3)
  1. (MELPHALAN) [Suspect]
     Indication: STEM CELL TRANSPLANT
     Dosage: INJECTION 70, 70 MG/M2 QD, INTRAVENOUS
     Route: 042
     Dates: start: 20070226
  2. (OTHERS) [Concomitant]
  3. BUSULFAN [Suspect]
     Indication: STEM CELL TRANSPLANT
     Dosage: 4 MG/KG QD, ORAL
     Route: 048
     Dates: start: 20070223

REACTIONS (8)
  - C-REACTIVE PROTEIN INCREASED [None]
  - NAUSEA [None]
  - STOMATITIS [None]
  - STAPHYLOCOCCAL SEPSIS [None]
  - HYPOKALAEMIA [None]
  - HYPOCALCAEMIA [None]
  - BLOOD LACTATE DEHYDROGENASE INCREASED [None]
  - STAPHYLOCOCCAL INFECTION [None]
